FAERS Safety Report 4281918-X (Version None)
Quarter: 2004Q1

REPORT INFORMATION
  Report Type: 
  Country: None (occurrence: None)
  Receive Date: 20040128
  Receipt Date: 20040108
  Transmission Date: 20041129
  Serious: Yes (Hospitalization)
  Sender: FDA-Public Use
  Company Number: ATO-04-0033

PATIENT
  Age: 81 Year
  Sex: Female
  Weight: 61.2356 kg

DRUGS (10)
  1. TRISENOX [Suspect]
     Indication: MULTIPLE MYELOMA
     Dosage: 15 MILLIGRAM (0.25 MG/KG, BIW), IVI
     Dates: start: 20031211, end: 20031231
  2. ASCORBIC ACID [Suspect]
     Indication: MULTIPLE MYELOMA
     Dosage: 1 GRAM (BIW), IVI
     Dates: start: 20031211, end: 20031231
  3. MELPHALAN [Suspect]
     Indication: MULTIPLE MYELOMA
     Dosage: 6 MILLIGRAM (0.1 MG/KG, QDX4 DAYS), ORAL
     Route: 048
     Dates: start: 20031211, end: 20031215
  4. SODIUM BICARBONATE IN PLASTIC CONTAINER [Concomitant]
  5. PRILOSEC [Concomitant]
  6. COLACE [Concomitant]
  7. MEGACE [Concomitant]
  8. ADVAIR DISKUS 100/50 [Concomitant]
  9. DARVOCET [Concomitant]
  10. TUSSIN [Concomitant]

REACTIONS (8)
  - ANAEMIA [None]
  - BLOOD CREATINE INCREASED [None]
  - CONTUSION [None]
  - DEHYDRATION [None]
  - EYE INJURY [None]
  - FALL [None]
  - HEART RATE INCREASED [None]
  - HYPERCALCAEMIA [None]
